FAERS Safety Report 5868881-2 (Version None)
Quarter: 2008Q3

REPORT INFORMATION
  Report Type: 
  Country: None (occurrence: None)
  Receive Date: 20080903
  Receipt Date: 20080827
  Transmission Date: 20090109
  Serious: Yes (Hospitalization, Other)
  Sender: FDA-Public Use
  Company Number: BR-BAYER-200812610LA

PATIENT
  Age: 45 Year
  Sex: Female

DRUGS (6)
  1. BETAFERON [Suspect]
     Indication: MULTIPLE SCLEROSIS
     Route: 058
     Dates: start: 20080101, end: 20080801
  2. BETAFERON [Suspect]
     Route: 058
     Dates: start: 20080101, end: 20080301
  3. BETAFERON [Suspect]
     Route: 058
     Dates: start: 20060101, end: 20080101
  4. BETAFERON [Suspect]
     Route: 058
     Dates: start: 19990101, end: 20060901
  5. CALCIUM [Concomitant]
     Indication: DRUG USE FOR UNKNOWN INDICATION
     Route: 065
  6. VITAMIN TAB [Concomitant]
     Indication: DRUG USE FOR UNKNOWN INDICATION
     Route: 065

REACTIONS (6)
  - ADVERSE DRUG REACTION [None]
  - ALANINE AMINOTRANSFERASE INCREASED [None]
  - ASPARTATE AMINOTRANSFERASE INCREASED [None]
  - FACIAL PALSY [None]
  - INJECTION SITE REACTION [None]
  - MULTIPLE SCLEROSIS [None]
